FAERS Safety Report 6029785-8 (Version None)
Quarter: 2009Q1

REPORT INFORMATION
  Report Type: 
  Country: None (occurrence: None)
  Receive Date: 20090106
  Receipt Date: 20090106
  Transmission Date: 20090719
  Serious: Yes (Disabling, Other)
  Sender: FDA-Public Use
  Company Number: None

PATIENT
  Age: 29 Year
  Sex: Male
  Weight: 90.7194 kg

DRUGS (1)
  1. AMBIEN CR [Suspect]
     Indication: INSOMNIA
     Dosage: VARIOUS DAILY
     Dates: start: 20031201, end: 20040801

REACTIONS (4)
  - AMNESIA [None]
  - IMPRISONMENT [None]
  - SEXUAL ABUSE [None]
  - SLEEP SEX [None]
